FAERS Safety Report 14460539 (Version 2)
Quarter: 2018Q1

REPORT INFORMATION
  Report Type: Spontaneous
  Country: US (occurrence: US)
  Receive Date: 20180130
  Receipt Date: 20180201
  Transmission Date: 20180509
  Serious: No
  Sender: FDA-Public Use
  Company Number: US-GLAXOSMITHKLINE-US2018GSK015816

PATIENT
  Age: 59 Year
  Sex: Female

DRUGS (1)
  1. BREO ELLIPTA [Suspect]
     Active Substance: FLUTICASONE FUROATE\VILANTEROL TRIFENATATE
     Indication: PRODUCT USED FOR UNKNOWN INDICATION
     Dosage: 1 PUFF(S), QD
     Route: 055
     Dates: end: 20180127

REACTIONS (9)
  - Pain [Unknown]
  - Pharyngeal oedema [Not Recovered/Not Resolved]
  - Adverse reaction [Unknown]
  - Infection [Unknown]
  - Extra dose administered [Unknown]
  - Dyspnoea [Recovering/Resolving]
  - Underdose [Unknown]
  - Drug dose omission [Unknown]
  - Pharyngitis streptococcal [Recovering/Resolving]

NARRATIVE: CASE EVENT DATE: 20180128
